FAERS Safety Report 9307751 (Version 1)
Quarter: 2013Q2

REPORT INFORMATION
  Report Type: Report from Study
  Country: US (occurrence: US)
  Receive Date: 20130524
  Receipt Date: 20130524
  Transmission Date: 20140414
  Serious: Yes (Death, Other)
  Sender: FDA-Public Use
  Company Number: US-GENZYME-CLOF-1002628

PATIENT
  Age: 71 Year
  Sex: Male
  Weight: 93.3 kg

DRUGS (4)
  1. CLOLAR [Suspect]
     Indication: ACUTE MYELOID LEUKAEMIA
     Dosage: 320 MG, UNK (INDUCTION THERAPY)
     Route: 042
     Dates: start: 20130418, end: 20130422
  2. ANTIBIOTICS [Concomitant]
     Indication: PROPHYLAXIS
     Dosage: UNK
     Route: 042
     Dates: start: 20130427
  3. PLATELETS [Concomitant]
     Indication: SURGERY
     Dosage: 4 U, UNK
     Route: 065
     Dates: start: 20130427
  4. CRYSTALLOID [Concomitant]
     Indication: SURGERY
     Dosage: 2200 ML, UNK
     Route: 065
     Dates: start: 20130427

REACTIONS (7)
  - Intestinal perforation [Unknown]
  - Atelectasis [Unknown]
  - Cardiomegaly [Unknown]
  - Febrile neutropenia [Unknown]
  - Peritonitis [Unknown]
  - Pancytopenia [Unknown]
  - Caecitis [Fatal]
